FAERS Safety Report 4974058-5 (Version None)
Quarter: 2006Q2

REPORT INFORMATION
  Report Type: 
  Country: None (occurrence: None)
  Receive Date: 20060417
  Receipt Date: 20060118
  Transmission Date: 20061013
  Serious: Yes (Other)
  Sender: FDA-Public Use
  Company Number: 14301

PATIENT
  Age: 20 Year
  Sex: Female

DRUGS (5)
  1. LAMOTRIGINE [Suspect]
     Indication: BIPOLAR DISORDER
     Dosage: 25MGD UNKNOWN
     Route: 048
     Dates: start: 20050822
  2. TRILEPTAL [Concomitant]
     Indication: INTENTIONAL OVERDOSE
     Dosage: 2100MG SINGLE DOSE
     Route: 048
     Dates: start: 20050815, end: 20050815
  3. GEODON [Concomitant]
     Indication: INTENTIONAL OVERDOSE
     Dosage: 1800MG SINGLE DOSE
     Route: 065
     Dates: start: 20050815, end: 20050815
  4. ZYPREXA [Concomitant]
     Indication: INTENTIONAL OVERDOSE
     Dosage: 5MG SINGLE DOSE
     Route: 065
     Dates: start: 20050815, end: 20050815
  5. PROZAC [Concomitant]
     Indication: INTENTIONAL OVERDOSE
     Dosage: 750MG SINGLE DOSE
     Route: 065
     Dates: start: 20050815, end: 20050815

REACTIONS (3)
  - CAESAREAN SECTION [None]
  - DELAYED DELIVERY [None]
  - NORMAL NEWBORN [None]
